FAERS Safety Report 6913893-0 (Version None)
Quarter: 2010Q3

REPORT INFORMATION
  Report Type: 
  Country: None (occurrence: None)
  Receive Date: 20100809
  Receipt Date: 20100804
  Transmission Date: 20110219
  Serious: Yes (Hospitalization)
  Sender: FDA-Public Use
  Company Number: IT-BAYER-201035065GPV

PATIENT
  Age: 80 Year
  Sex: Female

DRUGS (4)
  1. ASPIRIN [Suspect]
     Indication: HYPERTENSION
     Dosage: TOTAL DAILY DOSE: 100 MG
     Route: 048
     Dates: start: 20090101, end: 20100511
  2. ATENOL [Concomitant]
     Route: 048
  3. MADOPAR [Concomitant]
  4. PRAZENE [Concomitant]

REACTIONS (1)
  - ANAEMIA [None]
